FAERS Safety Report 4416323-6 (Version None)
Quarter: 2004Q3

REPORT INFORMATION
  Report Type: 
  Country: None (occurrence: None)
  Receive Date: 20040804
  Receipt Date: 20040804
  Transmission Date: 20050211
  Serious: Yes (Hospitalization)
  Sender: FDA-Public Use
  Company Number: None

PATIENT
  Age: 71 Year
  Sex: Male
  Weight: 70 kg

DRUGS (2)
  1. AMIODARONE HCL [Suspect]
     Indication: VENTRICULAR ARRHYTHMIA
     Dosage: 900 MG/500 CC @ 17CC/H, 400 MG PO Q DAILY
     Dates: start: 20030603, end: 20030604
  2. AMIODARONE HCL [Suspect]
     Indication: VENTRICULAR ARRHYTHMIA
     Dosage: 900 MG/500 CC @ 17CC/H, 400 MG PO Q DAILY
     Dates: start: 20030604, end: 20030823

REACTIONS (1)
  - HYPOTHYROIDISM [None]
